FAERS Safety Report 14107888 (Version 2)
Quarter: 2017Q4

REPORT INFORMATION
  Report Type: Spontaneous
  Country: HU (occurrence: HU)
  Receive Date: 20171019
  Receipt Date: 20171109
  Transmission Date: 20180321
  Serious: Yes (Hospitalization, Other)
  Sender: FDA-Public Use
  Company Number: HU-GLAXOSMITHKLINE-HU2017GSK160155

PATIENT
  Age: 35 Year
  Sex: Female

DRUGS (10)
  1. SYNCUMAR [Concomitant]
     Active Substance: ACENOCOUMAROL
     Indication: PRODUCT USED FOR UNKNOWN INDICATION
  2. CATAFLAM [Suspect]
     Active Substance: DICLOFENAC POTASSIUM
     Indication: PAIN
  3. AMOXICILLIN + CLAVULANATE K [Suspect]
     Active Substance: AMOXICILLIN\CLAVULANATE POTASSIUM
     Indication: PROPHYLAXIS
     Dosage: 2 G, UNK
  4. NOCLAUD [Concomitant]
     Active Substance: CILOSTAZOL
     Indication: PRODUCT USED FOR UNKNOWN INDICATION
  5. ASPIRIN. [Concomitant]
     Active Substance: ASPIRIN
     Indication: PRODUCT USED FOR UNKNOWN INDICATION
  6. PANTOPRAZOLE [Suspect]
     Active Substance: PANTOPRAZOLE
     Indication: PRODUCT USED FOR UNKNOWN INDICATION
     Dosage: 20 MG, BID
  7. AUGMENTINE [Concomitant]
     Active Substance: AMOXICILLIN\CLAVULANATE POTASSIUM
     Indication: PRODUCT USED FOR UNKNOWN INDICATION
  8. MEDROL [Concomitant]
     Active Substance: METHYLPREDNISOLONE
     Indication: PRODUCT USED FOR UNKNOWN INDICATION
  9. CHLORHEXIDINE [Concomitant]
     Active Substance: CHLORHEXIDINE
     Indication: PRODUCT USED FOR UNKNOWN INDICATION
  10. CONCOR [Concomitant]
     Active Substance: BISOPROLOL FUMARATE
     Indication: PRODUCT USED FOR UNKNOWN INDICATION

REACTIONS (20)
  - Granulomatosis with polyangiitis [Recovering/Resolving]
  - Sinusitis [Unknown]
  - Pyrexia [Unknown]
  - Headache [Unknown]
  - Paraesthesia [Unknown]
  - Condition aggravated [Unknown]
  - Pain [Unknown]
  - Infectious mononucleosis [Unknown]
  - Acute leukaemia [Unknown]
  - Gingival swelling [Unknown]
  - Lymphadenopathy [Unknown]
  - Pneumonia [Unknown]
  - Nasal congestion [Unknown]
  - Pain in extremity [Unknown]
  - Purulent discharge [Unknown]
  - Insomnia [Unknown]
  - Pyogenic granuloma [Unknown]
  - Ear infection [Unknown]
  - Parotid gland enlargement [Unknown]
  - Muscular weakness [Unknown]
